FAERS Safety Report 16625633 (Version 1)
Quarter: 2019Q3

REPORT INFORMATION
  Report Type: Spontaneous
  Country: US (occurrence: US)
  Receive Date: 20190724
  Receipt Date: 20190724
  Transmission Date: 20191004
  Serious: No
  Sender: FDA-Public Use
  Company Number: None

PATIENT
  Age: 65 Year
  Sex: Female

DRUGS (1)
  1. IBRANCE [Suspect]
     Active Substance: PALBOCICLIB
     Dates: start: 20180410

REACTIONS (4)
  - Pruritus [None]
  - Skin disorder [None]
  - Erythema [None]
  - Skin burning sensation [None]

NARRATIVE: CASE EVENT DATE: 20190724
